FAERS Safety Report 12550221 (Version 1)
Quarter: 2016Q3

REPORT INFORMATION
  Report Type: Spontaneous
  Country: CA (occurrence: CA)
  Receive Date: 20160712
  Receipt Date: 20160712
  Transmission Date: 20161109
  Serious: Yes (Hospitalization, Other)
  Sender: FDA-Public Use
  Company Number: CA-WATSON-2016-15254

PATIENT
  Age: 57 Year
  Sex: Male

DRUGS (12)
  1. CLARITHROMYCIN XL (UNKNOWN) [Interacting]
     Active Substance: CLARITHROMYCIN
     Indication: MYCOBACTERIUM ABSCESSUS INFECTION
     Dosage: 500 MG, BID
     Route: 048
  2. PIPERACILLIN AND TAZOBACTAM [Interacting]
     Active Substance: PIPERACILLIN SODIUM\TAZOBACTAM SODIUM
     Indication: EVIDENCE BASED TREATMENT
     Dosage: 4.5 G, Q8H
     Route: 042
  3. WARFARIN (UNKNOWN) [Interacting]
     Active Substance: WARFARIN
     Indication: PRODUCT USED FOR UNKNOWN INDICATION
     Dosage: UNK
     Route: 065
  4. MEROPENEM (UNKNOWN) [Interacting]
     Active Substance: MEROPENEM
     Indication: BACTERIAL INFECTION
     Dosage: 1 G, Q8H
     Route: 042
  5. VANCOMYCIN (UNKNOWN) [Suspect]
     Active Substance: VANCOMYCIN
     Indication: BACTERIAL INFECTION
     Dosage: 1.25 G, BID
     Route: 042
  6. AMIKACIN [Interacting]
     Active Substance: AMIKACIN
     Indication: MYCOBACTERIUM ABSCESSUS INFECTION
     Dosage: 900 MG, DAILY
     Route: 042
  7. ISONIAZID. [Concomitant]
     Active Substance: ISONIAZID
     Indication: MYCOBACTERIUM TEST POSITIVE
     Dosage: UNK
     Route: 065
  8. PYRAZINAMIDE. [Concomitant]
     Active Substance: PYRAZINAMIDE
     Indication: MYCOBACTERIUM TEST POSITIVE
     Dosage: UNK
     Route: 065
  9. PENICILLIN                         /00000901/ [Interacting]
     Active Substance: PENICILLIN G
     Indication: DENTAL OPERATION
     Dosage: UNK
     Route: 048
  10. RIFAMPIN. [Concomitant]
     Active Substance: RIFAMPIN
     Indication: MYCOBACTERIUM TEST POSITIVE
     Dosage: UNK
     Route: 065
  11. ETHAMBUTOL [Concomitant]
     Active Substance: ETHAMBUTOL HYDROCHLORIDE
     Indication: MYCOBACTERIUM TEST POSITIVE
     Dosage: UNK
     Route: 065
  12. IMIPENEM /00820501/ [Interacting]
     Active Substance: CILASTATIN SODIUM\IMIPENEM
     Indication: MYCOBACTERIUM ABSCESSUS INFECTION
     Dosage: 500 MG, Q6H
     Route: 042

REACTIONS (4)
  - International normalised ratio increased [Unknown]
  - Gastrointestinal haemorrhage [Unknown]
  - Potentiating drug interaction [Unknown]
  - Ototoxicity [None]
